FAERS Safety Report 6087827-8 (Version None)
Quarter: 2009Q1

REPORT INFORMATION
  Report Type: 
  Country: None (occurrence: None)
  Receive Date: 20090223
  Receipt Date: 20090209
  Transmission Date: 20090719
  Serious: Yes (Death)
  Sender: FDA-Public Use
  Company Number: US-GENENTECH-277361

PATIENT
  Age: 35 Year
  Sex: Male

DRUGS (5)
  1. RITUXAN [Suspect]
     Indication: HAIRY CELL LEUKAEMIA
  2. PEGINTERFERON ALFA NOS [Suspect]
     Indication: HAIRY CELL LEUKAEMIA
  3. CLADRIBINE [Suspect]
     Indication: HAIRY CELL LEUKAEMIA
  4. FLUDARABINE PHOSPHATE [Suspect]
     Indication: HAIRY CELL LEUKAEMIA
  5. INTERFERON ALFA 2A [Suspect]
     Indication: HAIRY CELL LEUKAEMIA

REACTIONS (4)
  - BONE MARROW FAILURE [None]
  - BRONCHOPULMONARY ASPERGILLOSIS [None]
  - PYREXIA [None]
  - SEPSIS [None]
